FAERS Safety Report 15553223 (Version 1)
Quarter: 2018Q4

REPORT INFORMATION
  Report Type: Spontaneous
  Country: ES (occurrence: ES)
  Receive Date: 20181026
  Receipt Date: 20181026
  Transmission Date: 20190205
  Serious: Yes (Other)
  Sender: FDA-Public Use
  Company Number: ES-BRISTOL-MYERS SQUIBB COMPANY-BMS-2018-039108

PATIENT
  Sex: Male

DRUGS (2)
  1. PREDNISONE. [Concomitant]
     Active Substance: PREDNISONE
     Indication: PRODUCT USED FOR UNKNOWN INDICATION
     Dosage: UNK
     Route: 065
  2. OPDIVO [Suspect]
     Active Substance: NIVOLUMAB
     Indication: METASTASES TO KIDNEY
     Dosage: 3 MG/KG, Q2WK
     Route: 042
     Dates: start: 201801

REACTIONS (11)
  - Ascites [Unknown]
  - Urine analysis abnormal [Unknown]
  - Blood creatinine increased [Unknown]
  - Blood bilirubin increased [Unknown]
  - Transaminases increased [Recovering/Resolving]
  - Alopecia [Unknown]
  - Red blood cell count increased [Unknown]
  - Blood potassium abnormal [Unknown]
  - Blood urine present [Unknown]
  - Protein total abnormal [Unknown]
  - Anosmia [Unknown]
